FAERS Safety Report 4506434-9 (Version None)
Quarter: 2004Q4

REPORT INFORMATION
  Report Type: 
  Country: None (occurrence: None)
  Receive Date: 20041117
  Receipt Date: 20041101
  Transmission Date: 20050328
  Serious: Yes (Hospitalization)
  Sender: FDA-Public Use
  Company Number: 9220

PATIENT
  Age: 47 Year
  Sex: Male

DRUGS (3)
  1. VINCRISTINE [Suspect]
     Indication: NON-HODGKIN'S LYMPHOMA
     Dosage: 2 MG FREQ
     Dates: start: 20041015
  2. FLU VACCINE [Concomitant]
  3. PREDNISONE [Concomitant]

REACTIONS (3)
  - MUSCLE CRAMP [None]
  - PAIN IN EXTREMITY [None]
  - PYREXIA [None]
